FAERS Safety Report 12858320 (Version 2)
Quarter: 2016Q4

REPORT INFORMATION
  Report Type: Spontaneous
  Country: JP (occurrence: JP)
  Receive Date: 20161018
  Receipt Date: 20161031
  Transmission Date: 20170207
  Serious: Yes (Hospitalization)
  Sender: FDA-Public Use
  Company Number: JP-JNJFOC-20161013109

PATIENT
  Age: 80 Year
  Sex: Female

DRUGS (18)
  1. CRESTOR [Concomitant]
     Active Substance: ROSUVASTATIN CALCIUM
     Route: 048
     Dates: end: 20160929
  2. MAGMITT [Concomitant]
     Active Substance: MAGNESIUM OXIDE
     Indication: CONSTIPATION
     Route: 048
  3. LANSOPRAZOLE. [Concomitant]
     Active Substance: LANSOPRAZOLE
     Indication: GASTROOESOPHAGEAL REFLUX DISEASE
     Route: 065
  4. CEPHADOL [Concomitant]
     Active Substance: DIPHENIDOL HYDROCHLORIDE
     Route: 048
  5. ROZEREM [Concomitant]
     Active Substance: RAMELTEON
     Indication: INSOMNIA
     Route: 048
  6. LANSOPRAZOLE. [Concomitant]
     Active Substance: LANSOPRAZOLE
     Indication: GASTRIC ULCER
     Route: 065
  7. REMINYL [Suspect]
     Active Substance: GALANTAMINE
     Indication: DEMENTIA
     Dosage: AFTER BREAKFAST, DINNER
     Route: 048
     Dates: start: 20160908, end: 20160929
  8. DEPAS [Concomitant]
     Active Substance: ETIZOLAM
     Indication: ANXIETY
     Dosage: P.R.N.
     Route: 048
     Dates: end: 20160929
  9. DOGMATYL [Concomitant]
     Active Substance: SULPIRIDE
     Indication: DUODENAL ULCER
     Route: 048
  10. BAYASPIRIN [Concomitant]
     Active Substance: ASPIRIN
     Indication: THROMBOSIS PROPHYLAXIS
     Route: 048
  11. DOGMATYL [Concomitant]
     Active Substance: SULPIRIDE
     Indication: GASTRIC ULCER
     Route: 048
  12. DOGMATYL [Concomitant]
     Active Substance: SULPIRIDE
     Indication: PSYCHIATRIC SYMPTOM
     Route: 048
  13. BONALON [Concomitant]
     Active Substance: ALENDRONATE SODIUM
     Indication: OSTEOPOROSIS
     Route: 048
  14. NESINA [Concomitant]
     Active Substance: ALOGLIPTIN BENZOATE
     Indication: DIABETES MELLITUS
     Route: 048
  15. MYSLEE [Concomitant]
     Active Substance: ZOLPIDEM TARTRATE
     Indication: INSOMNIA
     Route: 048
  16. MOHRUS [Concomitant]
     Active Substance: KETOPROFEN
     Indication: PAIN
     Route: 062
  17. SEIBULE [Concomitant]
     Active Substance: MIGLITOL
     Indication: DIABETES MELLITUS
     Route: 048
  18. GLUFAST [Concomitant]
     Active Substance: MITIGLINIDE
     Indication: DIABETES MELLITUS
     Route: 048

REACTIONS (1)
  - Rhabdomyolysis [Recovered/Resolved]

NARRATIVE: CASE EVENT DATE: 20160929
